FAERS Safety Report 6366970-X (Version None)
Quarter: 2009Q3

REPORT INFORMATION
  Report Type: 
  Country: None (occurrence: None)
  Receive Date: 20090915
  Receipt Date: 20090907
  Transmission Date: 20100115
  Serious: Yes (Other)
  Sender: FDA-Public Use
  Company Number: 2009AL005916

PATIENT
  Age: 38 Year
  Sex: Female

DRUGS (3)
  1. GABAPENTIN [Suspect]
  2. CARBAMAZEPINE [Suspect]
  3. VALPROIC ACID [Concomitant]

REACTIONS (2)
  - MEMORY IMPAIRMENT [None]
  - RESTLESSNESS [None]
